FAERS Safety Report 12332257 (Version 2)
Quarter: 2016Q2

REPORT INFORMATION
  Report Type: Spontaneous
  Country: US (occurrence: US)
  Receive Date: 20160504
  Receipt Date: 20160520
  Transmission Date: 20160815
  Serious: Yes (Other)
  Sender: FDA-Public Use
  Company Number: US-BAYER-2016-083643

PATIENT
  Age: 25 Year
  Sex: Male
  Weight: 72.56 kg

DRUGS (1)
  1. GADAVIST [Suspect]
     Active Substance: GADOBUTROL
     Indication: NUCLEAR MAGNETIC RESONANCE IMAGING
     Dosage: 7.5 ML VIAL INJECTION RATE 2 ML
     Route: 042
     Dates: start: 20160419, end: 20160419

REACTIONS (11)
  - Nasal congestion [None]
  - Respiratory disorder [None]
  - Throat irritation [Recovered/Resolved]
  - Pharyngeal oedema [Recovered/Resolved]
  - Oral discomfort [Recovered/Resolved]
  - Sinus congestion [Recovered/Resolved]
  - Dysphonia [None]
  - Urticaria [Recovered/Resolved]
  - Sneezing [Recovered/Resolved]
  - Oral pruritus [Recovered/Resolved]
  - Flushing [None]

NARRATIVE: CASE EVENT DATE: 20160419
